FAERS Safety Report 24843178 (Version 1)
Quarter: 2025Q1

REPORT INFORMATION
  Report Type: Spontaneous
  Country: US (occurrence: US)
  Receive Date: 20250115
  Receipt Date: 20250115
  Transmission Date: 20250408
  Serious: Yes (Other)
  Sender: JOHNSON AND JOHNSON
  Company Number: US-JNJFOC-20250122717

PATIENT

DRUGS (1)
  1. TALQUETAMAB [Suspect]
     Active Substance: TALQUETAMAB
     Indication: Plasma cell myeloma
     Route: 065
     Dates: start: 20240812, end: 20241023

REACTIONS (2)
  - Myocarditis [Recovered/Resolved]
  - Cytokine release syndrome [Unknown]
